FAERS Safety Report 8492089-8 (Version None)
Quarter: 2012Q3

REPORT INFORMATION
  Report Type: 
  Country: None (occurrence: None)
  Receive Date: 20120706
  Receipt Date: 20120702
  Transmission Date: 20120928
  Serious: Yes (Other)
  Sender: FDA-Public Use
  Company Number: US-COVIDIEN/TYCO HEALTHCARE/MALLINCKRODT-T201202689

PATIENT
  Age: 62 Year
  Sex: Female
  Weight: 40.816 kg

DRUGS (6)
  1. LYRICA [Concomitant]
     Indication: FIBROMYALGIA
     Dosage: UNK
  2. CYMBALTA [Concomitant]
     Indication: DEPRESSION
     Dosage: UNK
  3. FENTANYL-100 [Suspect]
     Indication: FIBROMYALGIA
     Dosage: 75 UG/HR Q 72 HOURS
     Route: 062
     Dates: start: 20120601
  4. OPANA [Concomitant]
     Indication: PAIN
     Dosage: UNK
     Dates: start: 20110101, end: 20120601
  5. FENTANYL-100 [Suspect]
     Indication: BACK PAIN
  6. FENTANYL-100 [Suspect]
     Indication: MULTIPLE SCLEROSIS

REACTIONS (2)
  - DEPRESSION [None]
  - FATIGUE [None]
